FAERS Safety Report 15048717 (Version 1)
Quarter: 2018Q3

REPORT INFORMATION
  Report Type: Spontaneous
  Country: HU (occurrence: HU)
  Receive Date: 20180622
  Receipt Date: 20180622
  Transmission Date: 20181010
  Serious: Yes (Hospitalization)
  Sender: FDA-Public Use
  Company Number: HU-TEVA-2018-HU-911558

PATIENT
  Age: 74 Year
  Sex: Female

DRUGS (6)
  1. RIVOTRIL [Suspect]
     Active Substance: CLONAZEPAM
     Indication: AGITATION
     Route: 040
     Dates: start: 20180212
  2. NOACID 40 MG POR OLDATOS INJEKCI?HOZ [Concomitant]
     Indication: PROPHYLAXIS AGAINST GASTROINTESTINAL ULCER
     Dosage: 40 MILLIGRAM DAILY;
  3. VITAMIN B1 ? ZENTIVA 50 MG OLDATOS INJEKCI? [Concomitant]
     Dosage: 50 MILLIGRAM DAILY;
  4. CLONIDINE. [Suspect]
     Active Substance: CLONIDINE
     Indication: AGITATION
     Route: 040
     Dates: start: 20180212, end: 20180212
  5. MORFINA CLORIDRATO MONICO [Concomitant]
     Indication: POSTOPERATIVE ANALGESIA
     Route: 048
  6. ALGOPYRIN 1 G/2 ML OLDATOS INJEKCI? [Concomitant]
     Indication: POSTOPERATIVE ANALGESIA
     Route: 042

REACTIONS (2)
  - Pruritus generalised [Recovered/Resolved]
  - Urticaria [Recovered/Resolved]

NARRATIVE: CASE EVENT DATE: 20180212
